FAERS Safety Report 10045037 (Version 1)
Quarter: 2014Q1

REPORT INFORMATION
  Report Type: Report from Study
  Country: US (occurrence: US)
  Receive Date: 20140328
  Receipt Date: 20140328
  Transmission Date: 20141002
  Serious: Yes (Other)
  Sender: FDA-Public Use
  Company Number: US-ALEXION PHARMACEUTICALS INC.-A201001977

PATIENT
  Sex: Female

DRUGS (1)
  1. SOLIRIS [Suspect]
     Indication: PAROXYSMAL NOCTURNAL HAEMOGLOBINURIA
     Dosage: UNK
     Route: 042

REACTIONS (6)
  - Carpal tunnel syndrome [Unknown]
  - Hypothyroidism [Unknown]
  - Basal cell carcinoma [Unknown]
  - Hypertension [Unknown]
  - Urinary tract infection [Unknown]
  - Leukopenia [Unknown]
